FAERS Safety Report 9631045 (Version 1)
Quarter: 2013Q4

REPORT INFORMATION
  Report Type: Spontaneous
  Country: GB (occurrence: None)
  Receive Date: 20131011
  Receipt Date: 20131011
  Transmission Date: 20140711
  Serious: Yes (Life-Threatening)
  Sender: FDA-Public Use
  Company Number: FK201304478

PATIENT
  Age: 63 None
  Sex: Female

DRUGS (2)
  1. PACLITAXEL (MANUFACTURER UNKNOWN) (PACLITAXEL) (PACLITAXEL) [Suspect]
     Indication: PRODUCT USED FOR UNKNOWN INDICATION
     Dosage: NOT OTHERWISE SPECIFIED
     Route: 042
     Dates: start: 20130912, end: 20130912
  2. METOCLOPRAMIDE HYDROCHLORIDE [Concomitant]

REACTIONS (4)
  - Swelling face [None]
  - Erythema [None]
  - Unresponsive to stimuli [None]
  - Infusion related reaction [None]
